FAERS Safety Report 5531007-9 (Version None)
Quarter: 2007Q4

REPORT INFORMATION
  Report Type: 
  Country: None (occurrence: None)
  Receive Date: 20071130
  Receipt Date: 20071113
  Transmission Date: 20080405
  Serious: Yes (Other)
  Sender: FDA-Public Use
  Company Number: US-PFIZER INC-2007090216

PATIENT
  Sex: Male
  Weight: 95.454 kg

DRUGS (5)
  1. DILANTIN [Suspect]
     Indication: CONVULSION
     Route: 048
  2. ZYPREXA [Concomitant]
  3. DOXAZOSIN MESYLATE [Concomitant]
  4. LYRICA [Concomitant]
  5. TRAZODONE HCL [Concomitant]

REACTIONS (10)
  - ANTICONVULSANT DRUG LEVEL BELOW THERAPEUTIC [None]
  - ARTHRALGIA [None]
  - ARTHROPOD BITE [None]
  - CONVULSION [None]
  - ELBOW DEFORMITY [None]
  - FATIGUE [None]
  - FLUID RETENTION [None]
  - JOINT SWELLING [None]
  - RASH [None]
  - SKIN DISORDER [None]
